FAERS Safety Report 4939867-7 (Version None)
Quarter: 2006Q1

REPORT INFORMATION
  Report Type: 
  Country: None (occurrence: None)
  Receive Date: 20060310
  Receipt Date: 20060228
  Transmission Date: 20060701
  Serious: Yes (Other)
  Sender: FDA-Public Use
  Company Number: GB-JNJFOC-20060300556

PATIENT
  Age: 35 Year
  Sex: Female

DRUGS (2)
  1. RISPERDAL CONSTA [Suspect]
     Indication: PSYCHOTIC DISORDER
     Route: 030
  2. PROCYCLIDINE HYDROCHLORIDE 2MG TAB [Concomitant]
     Route: 048

REACTIONS (4)
  - PRURITUS [None]
  - RASH PUSTULAR [None]
  - SCAB [None]
  - TENDERNESS [None]
